FAERS Safety Report 25622554 (Version 2)
Quarter: 2025Q3

REPORT INFORMATION
  Report Type: Spontaneous
  Country: US (occurrence: US)
  Receive Date: 20250730
  Receipt Date: 20250815
  Transmission Date: 20251021
  Serious: No
  Sender: PFIZER
  Company Number: US-PFIZER INC-202500153647

PATIENT
  Age: 76 Year
  Sex: Female
  Weight: 60.317 kg

DRUGS (2)
  1. VELSIPITY [Suspect]
     Active Substance: ETRASIMOD ARGININE
     Indication: Colitis ulcerative
     Dosage: 2 MG, 1X/DAY
     Route: 048
     Dates: start: 20250728
  2. OZANIMOD [Concomitant]
     Active Substance: OZANIMOD

REACTIONS (1)
  - Migraine [Unknown]
